FAERS Safety Report 8003620-0 (Version None)
Quarter: 2011Q4

REPORT INFORMATION
  Report Type: 
  Country: None (occurrence: None)
  Receive Date: 20111222
  Receipt Date: 20111219
  Transmission Date: 20120403
  Serious: Yes (Death, Hospitalization)
  Sender: FDA-Public Use
  Company Number: US-ACTELION-A-NJ2008-22255

PATIENT

DRUGS (13)
  1. TRACLEER [Suspect]
     Dosage: 62.5 MG, BID
     Route: 048
     Dates: start: 20060404, end: 20080907
  2. LASIX [Concomitant]
  3. TRACLEER [Suspect]
     Indication: PULMONARY ARTERIAL HYPERTENSION
     Dosage: 125 MG, BID
     Route: 048
     Dates: start: 20080908, end: 20081007
  4. POTASSIUM CHLORIDE [Concomitant]
  5. MAGNESIUM [Concomitant]
  6. ALTACE [Concomitant]
  7. FLOVENT [Concomitant]
  8. ZEBETA [Concomitant]
  9. COUMADIN [Concomitant]
  10. TRACLEER [Suspect]
     Dosage: 62.5 MG, BID
     Route: 048
     Dates: start: 20081008, end: 20111216
  11. REVATIO [Concomitant]
  12. COMBIVENT [Concomitant]
  13. MIRAPEX [Concomitant]

REACTIONS (5)
  - PULMONARY ARTERIAL HYPERTENSION [None]
  - DYSPNOEA [None]
  - CONDITION AGGRAVATED [None]
  - CARDIAC FAILURE CONGESTIVE [None]
  - DEATH [None]
